FAERS Safety Report 9348753 (Version 3)
Quarter: 2013Q3

REPORT INFORMATION
  Report Type: Report from Study
  Country: ES (occurrence: ES)
  Receive Date: 20130614
  Receipt Date: 20130915
  Transmission Date: 20140515
  Serious: Yes (Death, Hospitalization)
  Sender: FDA-Public Use
  Company Number: ES-PFIZER INC-2013177030

PATIENT
  Age: 21 Year
  Sex: Male

DRUGS (8)
  1. IRINOTECAN HCL [Suspect]
     Indication: COLORECTAL CANCER METASTATIC
     Dosage: 180 MG/M2, ON DAY ONE EVERY 14 DAYS
     Route: 042
     Dates: start: 20130206, end: 20130403
  2. FLUOROURACIL [Suspect]
     Indication: COLORECTAL CANCER METASTATIC
     Dosage: 400 MG/M2, BOLUS; ON DAY ONE EVERY 14 DAYS
     Route: 040
     Dates: start: 20130206, end: 20130405
  3. FLUOROURACIL [Suspect]
     Dosage: 2400 MG/M2, ON DAY ONE AND TWO EVERY 14 DAYS
     Route: 042
     Dates: start: 20130206, end: 20130405
  4. FOLINIC ACID [Suspect]
     Indication: COLORECTAL CANCER METASTATIC
     Dosage: 400 MG/M2, ON DAY ONE EVERY 14 DAYS
     Route: 042
     Dates: start: 20130206, end: 20130403
  5. BLINDED THERAPY [Suspect]
     Indication: COLORECTAL CANCER METASTATIC
     Dosage: ON DAY ONE EVERY 14 DAYS
     Route: 042
     Dates: start: 20130206, end: 20130403
  6. IBUPROFEN [Concomitant]
     Indication: PAIN
     Dosage: UNK
  7. OMEPRAZOLE [Concomitant]
     Indication: PROPHYLAXIS
     Dosage: UNK
  8. FORTECORTIN [Concomitant]
     Indication: PAIN
     Dosage: UNK
     Dates: start: 20130516

REACTIONS (2)
  - Biliary tract infection [Fatal]
  - Biliary drainage [Fatal]
